FAERS Safety Report 9274886 (Version 2)
Quarter: 2013Q2

REPORT INFORMATION
  Report Type: Spontaneous
  Country: US (occurrence: US)
  Receive Date: 20130507
  Receipt Date: 20130509
  Transmission Date: 20140414
  Serious: Yes (Hospitalization)
  Sender: FDA-Public Use
  Company Number: US-BAYER-2013-053924

PATIENT
  Age: 28 Year
  Sex: Female

DRUGS (18)
  1. YAZ [Suspect]
     Indication: ACNE
     Dosage: UNK
     Dates: start: 201004
  2. HYDROCODONE/ACETAMINOPHEN [Concomitant]
     Dosage: 7.5 - 50 TAB
  3. SULFAMETHOXAZOLE W/TRIMETHOPRIM [Concomitant]
     Dosage: 800 - 160 TAB
  4. ALPRAZOLAM [Concomitant]
     Dosage: 0.5 MG, UNK
  5. CLONAZEPAM [Concomitant]
     Dosage: 0.5 MG, UNK
  6. CLONAZEPAM [Concomitant]
     Dosage: 1 MG, UNK
  7. TRAZODONE [Concomitant]
     Dosage: 100 MG, UNK
  8. TRAZODONE [Concomitant]
     Dosage: 150 MG, UNK
  9. LAMOTRIGINE [Concomitant]
     Dosage: 100 MG, UNK
  10. CARAFATE [Concomitant]
  11. AMOXICILLIN [Concomitant]
     Dosage: 500 MG, UNK
  12. PROMETHAZINE [Concomitant]
     Dosage: 25 MG, UNK
  13. CHERATUSSIN AC [Concomitant]
  14. KLONOPIN [Concomitant]
  15. LAMICTAL [Concomitant]
  16. DESYREL [Concomitant]
  17. DILAUDID [Concomitant]
     Dosage: UNK, PRN
  18. ANTIBIOTICS [Concomitant]
     Route: 042

REACTIONS (8)
  - Deep vein thrombosis [None]
  - Cholecystitis [None]
  - Injury [None]
  - Pain [None]
  - Emotional distress [None]
  - Fear of disease [None]
  - Anxiety [None]
  - Pain [None]
